FAERS Safety Report 23160401 (Version 1)
Quarter: 2023Q4

REPORT INFORMATION
  Report Type: Spontaneous
  Country: JP (occurrence: JP)
  Receive Date: 20231108
  Receipt Date: 20231108
  Transmission Date: 20240109
  Serious: No
  Sender: FDA-Public Use
  Company Number: JP-SCALL-2022-JP-186334

PATIENT
  Age: 8 Decade
  Sex: Male

DRUGS (1)
  1. DUTASTERIDE [Suspect]
     Active Substance: DUTASTERIDE
     Indication: Product used for unknown indication
     Dosage: UNKNOWN
     Route: 048

REACTIONS (1)
  - Weight increased [Unknown]
